FAERS Safety Report 18459418 (Version 3)
Quarter: 2021Q3

REPORT INFORMATION
  Report Type: Spontaneous
  Country: US (occurrence: US)
  Receive Date: 20201103
  Receipt Date: 20210729
  Transmission Date: 20211014
  Serious: No
  Sender: FDA-Public Use
  Company Number: US-PFIZER INC-2020421945

PATIENT
  Age: 68 Year
  Sex: Male

DRUGS (2)
  1. INLYTA [Suspect]
     Active Substance: AXITINIB
     Dosage: 1 MG
     Dates: start: 20201029
  2. INLYTA [Suspect]
     Active Substance: AXITINIB
     Dosage: 1 MG
     Dates: start: 20201102, end: 20210201

REACTIONS (3)
  - Obesity [Unknown]
  - Off label use [Unknown]
  - Hypertension [Unknown]
